FAERS Safety Report 15120068 (Version 5)
Quarter: 2018Q3

REPORT INFORMATION
  Report Type: Report from Study
  Country: FR (occurrence: FR)
  Receive Date: 20180709
  Receipt Date: 20180913
  Transmission Date: 20181010
  Serious: Yes (Other)
  Sender: FDA-Public Use
  Company Number: FR-ROCHE-2150462

PATIENT
  Age: 77 Year
  Sex: Male
  Weight: 70 kg

DRUGS (85)
  1. METHYLPREDNISOLONE. [Concomitant]
     Active Substance: METHYLPREDNISOLONE
     Indication: PREMEDICATION
     Route: 042
     Dates: start: 20180623, end: 20180624
  2. TAMSULOSINE [Concomitant]
     Active Substance: TAMSULOSIN HYDROCHLORIDE
     Indication: PROSTATOMEGALY
     Route: 048
  3. PARAFFIN [Concomitant]
     Active Substance: PARAFFIN
     Indication: CONSTIPATION
     Dosage: DOSE 1 OTHER
     Route: 048
     Dates: start: 20180713, end: 20180724
  4. CEFTAZIDIME. [Concomitant]
     Active Substance: CEFTAZIDIME
     Dosage: ANTI INFECTIVE
     Route: 042
     Dates: start: 20180721, end: 20180725
  5. PLACEBO [Suspect]
     Active Substance: UNSPECIFIED INGREDIENT
     Indication: DIFFUSE LARGE B-CELL LYMPHOMA
     Dosage: DATE OF MOST RECENT DOSE ADMINISTERED: 28/JUN/2018
     Route: 042
     Dates: start: 20180628
  6. VINCRISTINE [Suspect]
     Active Substance: VINCRISTINE
     Indication: DIFFUSE LARGE B-CELL LYMPHOMA
     Dosage: DATE OF MOST RECENT DOSE OF BLINDED VINCRISTINE PRIOR TO SAE ONSET 28/JUN/2018 ONCE IN 21 DAYS
     Route: 042
     Dates: start: 20180628
  7. AUGMENTIN [Concomitant]
     Active Substance: AMOXICILLIN\CLAVULANATE POTASSIUM
     Dosage: ULCERATION OF WOUND
     Route: 048
     Dates: start: 20180622
  8. CALCITONINE [Concomitant]
     Indication: HYPERCALCAEMIA
  9. NEFOPAM [Concomitant]
     Active Substance: NEFOPAM
     Indication: HYPERCALCAEMIA
  10. RASBURICASE [Concomitant]
     Active Substance: RASBURICASE
     Indication: HYPERCALCAEMIA
     Dosage: ANTILYSIS SYNDROME
     Route: 042
     Dates: start: 20180628, end: 20180628
  11. TINZAPARIN [Concomitant]
     Active Substance: TINZAPARIN
     Indication: HYPERCALCAEMIA
     Dosage: ANTI THROMBOSIS
     Route: 058
     Dates: start: 20180624
  12. KAYEXALATE [Concomitant]
     Active Substance: SODIUM POLYSTYRENE SULFONATE
     Indication: HYPERKALAEMIA
     Route: 048
     Dates: start: 20180628, end: 20180628
  13. PARACETAMOL [Concomitant]
     Active Substance: ACETAMINOPHEN
     Indication: HYPERCALCAEMIA
  14. ONDANSETRON [Concomitant]
     Active Substance: ONDANSETRON
     Indication: HYPERCALCAEMIA
  15. MESNA. [Concomitant]
     Active Substance: MESNA
     Indication: HYPERCALCAEMIA
  16. FASTURTEC [Concomitant]
     Active Substance: RASBURICASE
     Dosage: ANTI LYSIS SYNDROM
     Route: 042
     Dates: start: 20180628, end: 20180628
  17. LASILIX [Concomitant]
     Active Substance: FUROSEMIDE
     Route: 042
     Dates: start: 20180701, end: 20180705
  18. SOLU?MEDROL [Concomitant]
     Active Substance: METHYLPREDNISOLONE SODIUM SUCCINATE
     Indication: PREMEDICATION
     Route: 042
     Dates: start: 20180627
  19. PHOSPHORE (FRANCE) [Concomitant]
     Indication: HYPOPHOSPHATAEMIA
     Dosage: DOSE: 4 AMPULE
     Route: 042
     Dates: start: 20180726
  20. DOXORUBICIN [Suspect]
     Active Substance: DOXORUBICIN
     Indication: DIFFUSE LARGE B-CELL LYMPHOMA
     Dosage: DATE OF MOST RECENT DOSE OF DOXORUBICIN PRIOR TO SAE ONSET 28/JUN/2018: 91 MG
     Route: 042
     Dates: start: 20180628
  21. METHYLPREDNISOLONE. [Concomitant]
     Active Substance: METHYLPREDNISOLONE
     Indication: HYPERCALCAEMIA
     Route: 042
     Dates: start: 20180627
  22. NEFOPAM [Concomitant]
     Active Substance: NEFOPAM
     Indication: PAIN
     Route: 042
     Dates: start: 20180714
  23. PARACETAMOL [Concomitant]
     Active Substance: ACETAMINOPHEN
     Indication: PREMEDICATION
     Route: 048
     Dates: start: 20180627
  24. ONDANSETRON [Concomitant]
     Active Substance: ONDANSETRON
     Indication: PREMEDICATION
     Route: 050
     Dates: start: 20180627
  25. DAFALGAN [Concomitant]
     Active Substance: ACETAMINOPHEN
     Indication: LYMPHOMA
     Route: 065
  26. CEFEPIME [Concomitant]
     Active Substance: CEFEPIME HYDROCHLORIDE
     Dosage: ANTI INFECTIVE
     Route: 042
     Dates: start: 20180725, end: 20180803
  27. AERIUS [Concomitant]
     Active Substance: DESLORATADINE
     Indication: PREMEDICATION
     Route: 048
     Dates: start: 20180627
  28. SOLU?MEDROL [Concomitant]
     Active Substance: METHYLPREDNISOLONE SODIUM SUCCINATE
     Route: 042
     Dates: start: 20180520, end: 20180624
  29. BINOCRIT [Concomitant]
     Active Substance: ERYTHROPOIETIN
     Indication: ANAEMIA
     Route: 058
     Dates: start: 20180702
  30. PACKED RED BLOOD CELLS [Concomitant]
     Active Substance: HUMAN RED BLOOD CELL
     Indication: ANAEMIA
     Dosage: DOSE : 3 OTHER
     Route: 042
     Dates: start: 20180701, end: 20180702
  31. METHOTREXATE. [Concomitant]
     Active Substance: METHOTREXATE
     Indication: LYMPHOMA
     Route: 039
     Dates: start: 20180808
  32. RITUXIMAB. [Suspect]
     Active Substance: RITUXIMAB
     Indication: DIFFUSE LARGE B-CELL LYMPHOMA
     Dosage: DATE OF MOST RECENT DOSE OF RITUXIMAB PRIOR TO SAE ONSET 27/JUN/2018: 685 MG, WILL BE GIVEN AS MONOT
     Route: 042
     Dates: start: 20180627
  33. CYCLOPHOSPHAMIDE. [Suspect]
     Active Substance: CYCLOPHOSPHAMIDE
     Indication: DIFFUSE LARGE B-CELL LYMPHOMA
     Dosage: DATE OF MOST RECENT DOSE OF CYCLOPHOSPHAMIDE PRIOR TO SAE ONSET 28/JUN/2018: 1362.5 MG
     Route: 042
     Dates: start: 20180628
  34. AUGMENTIN [Concomitant]
     Active Substance: AMOXICILLIN\CLAVULANATE POTASSIUM
     Dosage: 1000/200 MG?ANTI INFECTIVES
     Route: 042
     Dates: start: 20180622, end: 20180627
  35. PANTOPRAZOLE [Concomitant]
     Active Substance: PANTOPRAZOLE
     Indication: HYPERCALCAEMIA
     Dosage: GASTRIC PROTECTION
     Route: 050
     Dates: end: 20180730
  36. TAMSULOSINE [Concomitant]
     Active Substance: TAMSULOSIN HYDROCHLORIDE
     Indication: HYPERCALCAEMIA
  37. ZOPICLONE [Concomitant]
     Active Substance: ZOPICLONE
     Indication: INSOMNIA
     Route: 048
  38. LORATADINE. [Concomitant]
     Active Substance: LORATADINE
     Indication: HYPERCALCAEMIA
  39. MESNA. [Concomitant]
     Active Substance: MESNA
     Indication: PREMEDICATION
     Route: 042
     Dates: start: 20180627
  40. ZOMETA [Concomitant]
     Active Substance: ZOLEDRONIC ACID
     Indication: OSTEOPOROSIS
     Route: 042
     Dates: start: 20180622, end: 20180622
  41. AMIKACINE [Concomitant]
     Active Substance: AMIKACIN
     Dosage: ANTI INFECTIVES
     Route: 042
     Dates: start: 20180706, end: 20180707
  42. FILGRASTIM [Concomitant]
     Active Substance: FILGRASTIM
     Dosage: ANTI NEUTROPENIA
     Route: 042
     Dates: start: 20180706, end: 20180710
  43. VANCOMYCINE [Concomitant]
     Active Substance: VANCOMYCIN
     Dosage: ANTI INFECTIVES
     Route: 042
     Dates: start: 20180703, end: 20180713
  44. CHLORHYDRATE DE MORPHINE [Concomitant]
     Active Substance: MORPHINE HYDROCHLORIDE
     Indication: PAIN
     Route: 042
     Dates: start: 20180703, end: 20180713
  45. LASILIX [Concomitant]
     Active Substance: FUROSEMIDE
     Route: 042
     Dates: start: 20180717, end: 20180718
  46. MORPHINE [Concomitant]
     Active Substance: MORPHINE
     Route: 048
     Dates: start: 20180714, end: 20180730
  47. SALBUTAMOL [Concomitant]
     Active Substance: ALBUTEROL
     Dosage: PREMEDICATION OF PENTACARINAT
     Route: 050
     Dates: start: 20180808
  48. NOVORAPID [Concomitant]
     Active Substance: INSULIN ASPART
     Indication: HYPERGLYCAEMIA
     Route: 058
     Dates: start: 20180628, end: 20180714
  49. OXYCODONE [Concomitant]
     Active Substance: OXYCODONE
     Indication: PAIN
     Route: 048
     Dates: start: 20180703
  50. KAYEXALATE [Concomitant]
     Active Substance: SODIUM POLYSTYRENE SULFONATE
     Indication: HYPERCALCAEMIA
  51. ZOPICLONE [Concomitant]
     Active Substance: ZOPICLONE
     Indication: HYPERCALCAEMIA
  52. LORATADINE. [Concomitant]
     Active Substance: LORATADINE
     Indication: PREMEDICATION
     Route: 048
     Dates: start: 20180627
  53. PREDNISOLONE. [Concomitant]
     Active Substance: PREDNISOLONE
     Indication: LYMPHOMA
     Route: 065
  54. ACUPAN [Concomitant]
     Active Substance: NEFOPAM HYDROCHLORIDE
     Route: 048
     Dates: start: 20180714
  55. TAZOCILLINE [Concomitant]
     Active Substance: PIPERACILLIN SODIUM\TAZOBACTAM SODIUM
     Dosage: ANTI INFECTIVES
     Route: 042
     Dates: start: 20180703, end: 20180713
  56. BACTRIM [Concomitant]
     Active Substance: SULFAMETHOXAZOLE\TRIMETHOPRIM
     Dosage: ANTI INFECTIVES
     Route: 048
     Dates: start: 20180711, end: 20180712
  57. IMOVANE [Concomitant]
     Active Substance: ZOPICLONE
     Indication: INSOMNIA
     Route: 048
  58. ZYLORIC [Concomitant]
     Active Substance: ALLOPURINOL
     Route: 048
     Dates: start: 20180720, end: 20180724
  59. IPRATROPIUM [Concomitant]
     Active Substance: IPRATROPIUM
     Dosage: PREMEDICATION OF PENTACARINAT
     Route: 050
     Dates: start: 20180808
  60. RED BLOOD CELLS [Concomitant]
     Active Substance: HUMAN RED BLOOD CELL
     Dosage: TRANSFUSION
     Route: 065
     Dates: start: 20180701, end: 20180702
  61. AUGMENTIN [Concomitant]
     Active Substance: AMOXICILLIN\CLAVULANATE POTASSIUM
     Dosage: ANTI INFECTIVE
     Route: 065
  62. OXYCODONE [Concomitant]
     Active Substance: OXYCODONE
     Indication: HYPERCALCAEMIA
     Route: 048
     Dates: start: 20180703
  63. KARDEGIC [Concomitant]
     Active Substance: ASPIRIN DL-LYSINE
     Indication: TRANSIENT ISCHAEMIC ATTACK
     Route: 048
  64. INNOHEP [Concomitant]
     Active Substance: TINZAPARIN SODIUM
     Dosage: ANTI THROMBOSIS
     Route: 058
  65. VANCOMYCINE [Concomitant]
     Active Substance: VANCOMYCIN
     Route: 042
     Dates: start: 20180703, end: 20180703
  66. ALBUMINE [Concomitant]
     Active Substance: ALBUMIN HUMAN
     Dosage: VASCULAR FILLING
     Route: 042
     Dates: start: 20180716, end: 20180718
  67. BINOCRIT [Concomitant]
     Active Substance: ERYTHROPOIETIN
     Route: 042
     Dates: start: 20180808
  68. CIPROFLOXACINE [Concomitant]
     Active Substance: CIPROFLOXACIN
     Dosage: ANTI INFECTIVE
     Route: 048
     Dates: start: 20180730, end: 20180730
  69. SODIUM BICARBONATE. [Concomitant]
     Active Substance: SODIUM BICARBONATE
     Dosage: ANTI ORAL DRYNESS
     Route: 048
     Dates: start: 20180808
  70. PREDNISOLONE. [Concomitant]
     Active Substance: PREDNISOLONE
     Indication: HYPERCALCAEMIA
     Route: 039
     Dates: start: 20180808
  71. DAFALGAN [Concomitant]
     Active Substance: ACETAMINOPHEN
     Indication: HYPERCALCAEMIA
  72. LASILIX [Concomitant]
     Active Substance: FUROSEMIDE
     Route: 048
     Dates: start: 20180715, end: 20180716
  73. ZOPHREN [Concomitant]
     Active Substance: ONDANSETRON
     Indication: PREMEDICATION
     Route: 050
     Dates: start: 20180627
  74. MORPHINE [Concomitant]
     Active Substance: MORPHINE
     Indication: PAIN
     Route: 048
     Dates: start: 20180714, end: 20180714
  75. ZELITREX [Concomitant]
     Active Substance: VALACYCLOVIR HYDROCHLORIDE
     Dosage: ANTI INFECTIVES
     Route: 048
     Dates: start: 20180710
  76. FOLINORAL [Concomitant]
     Active Substance: LEUCOVORIN CALCIUM
     Dosage: ANTI VITAMINE B6 DEPLETION
     Route: 048
     Dates: start: 20180712
  77. PREDNISONE. [Suspect]
     Active Substance: PREDNISONE
     Indication: DIFFUSE LARGE B-CELL LYMPHOMA
     Dosage: DAYS 1?5 OF EVERY 21 DAY CYCLE FOR 6 CYCLES ?DATE OF MOST RECENT DOSE OF PREDNISONE INTRAVENOUS PRIO
     Route: 042
     Dates: start: 20180627
  78. CALCITONINE [Concomitant]
     Indication: OSTEOPOROSIS
     Route: 058
     Dates: start: 20180628, end: 20180630
  79. KARDEGIC [Concomitant]
     Active Substance: ASPIRIN DL-LYSINE
     Indication: HYPERCALCAEMIA
  80. ACUPAN [Concomitant]
     Active Substance: NEFOPAM HYDROCHLORIDE
     Indication: PAIN
     Route: 042
     Dates: end: 20180714
  81. PLATELETS [Concomitant]
     Active Substance: HUMAN PLATELET, ALLOGENIC
     Dosage: DOSE : 1 OTHER
     Route: 065
     Dates: start: 20180706, end: 20180706
  82. XANAX [Concomitant]
     Active Substance: ALPRAZOLAM
     Indication: ANXIETY
     Route: 048
     Dates: start: 20180803, end: 20180803
  83. TRAMADOL. [Concomitant]
     Active Substance: TRAMADOL
     Indication: PAIN
     Route: 048
     Dates: start: 20180730
  84. PENTACARINAT [Concomitant]
     Active Substance: PENTAMIDINE ISETHIONATE
     Dosage: ANTI INFECTIVE
     Route: 050
     Dates: start: 20180808
  85. FORTIMEL [Concomitant]
     Active Substance: DIETARY SUPPLEMENT
     Dosage: DOSE: 2 OTHER?NUTRITION
     Route: 048
     Dates: start: 20180808

REACTIONS (2)
  - Tumour lysis syndrome [Unknown]
  - Haemorrhage [Recovered/Resolved]

NARRATIVE: CASE EVENT DATE: 20180629
